FAERS Safety Report 9108393 (Version 1)
Quarter: 2013Q1

REPORT INFORMATION
  Report Type: Spontaneous
  Country: US (occurrence: US)
  Receive Date: 20130222
  Receipt Date: 20130222
  Transmission Date: 20140127
  Serious: Yes (Hospitalization, Disabling, Other)
  Sender: FDA-Public Use
  Company Number: US-009507513-0711USA02030

PATIENT
  Sex: Male
  Weight: 68.39 kg

DRUGS (7)
  1. MK-0966 [Suspect]
     Indication: MENISCUS INJURY
     Dosage: 25 MG, QD
     Route: 048
     Dates: start: 20000524, end: 20001110
  2. MK-0966 [Suspect]
     Indication: ROTATOR CUFF SYNDROME
     Dosage: 25 MG, PRN
     Route: 048
     Dates: start: 20001110, end: 20010428
  3. MK-0966 [Suspect]
     Indication: ARTHRITIS
  4. IBUPROFEN [Concomitant]
     Dosage: UNK, PRN
  5. ALEVE [Concomitant]
  6. ADVIL [Concomitant]
     Indication: ARTHRITIS
     Dosage: UNK, PRN
  7. CHONDROITIN SULFATE SODIUM (+) GLUCOSAMINE SULFATE [Concomitant]
     Indication: ARTHRITIS
     Dosage: UNK
     Dates: end: 2012

REACTIONS (22)
  - Ischaemic stroke [Not Recovered/Not Resolved]
  - Visual field defect [Not Recovered/Not Resolved]
  - Shoulder operation [Unknown]
  - Shoulder operation [Unknown]
  - Shoulder operation [Unknown]
  - Skin neoplasm excision [Unknown]
  - Migraine [Not Recovered/Not Resolved]
  - Knee operation [Unknown]
  - Urinary tract infection enterococcal [Unknown]
  - Cerebral haemorrhage [Unknown]
  - Ventricular tachycardia [Unknown]
  - Fatigue [Not Recovered/Not Resolved]
  - Intracranial haematoma [Unknown]
  - Lens disorder [Unknown]
  - Haemorrhage [Unknown]
  - Meniscus injury [Unknown]
  - Rotator cuff syndrome [Unknown]
  - Cardiovascular disorder [Unknown]
  - Vitreous floaters [Unknown]
  - Blood cholesterol increased [Unknown]
  - Depression [Unknown]
  - Drug ineffective [Unknown]
